FAERS Safety Report 11915849 (Version 1)
Quarter: 2016Q1

REPORT INFORMATION
  Report Type: Spontaneous
  Country: CN (occurrence: CN)
  Receive Date: 20160114
  Receipt Date: 20160114
  Transmission Date: 20160526
  Serious: Yes (Hospitalization)
  Sender: FDA-Public Use
  Company Number: CN-ACTAVIS-2016-00310

PATIENT
  Age: 74 Year
  Sex: Female
  Weight: 53 kg

DRUGS (10)
  1. LANSOPRAZOLE (UNKNOWN) [Suspect]
     Active Substance: LANSOPRAZOLE
     Dosage: 30 MG, BID
     Route: 041
     Dates: start: 20141008, end: 20141011
  2. ESOMEPRAZOLE (UNKNOWN) [Suspect]
     Active Substance: ESOMEPRAZOLE
     Dosage: 200 MG, UNKNOWN
     Route: 041
     Dates: start: 20141015, end: 20141017
  3. ESOMEPRAZOLE (UNKNOWN) [Suspect]
     Active Substance: ESOMEPRAZOLE
     Dosage: 40 MG, BID
     Route: 041
     Dates: start: 20141014, end: 20141015
  4. THROMBIN [Concomitant]
     Active Substance: THROMBIN
     Indication: GASTROINTESTINAL HAEMORRHAGE
     Dosage: 1000 UNITS THROMBIN LYOPHILIZED POWDER EVERY 4 HOURS
     Route: 045
  5. LANSOPRAZOLE (UNKNOWN) [Suspect]
     Active Substance: LANSOPRAZOLE
     Dosage: 30 MG, DAILY
     Route: 041
     Dates: start: 20141101
  6. ESOMEPRAZOLE (UNKNOWN) [Suspect]
     Active Substance: ESOMEPRAZOLE
     Dosage: 40 MG, BID
     Route: 041
     Dates: start: 20141018, end: 20141026
  7. LANSOPRAZOLE (UNKNOWN) [Suspect]
     Active Substance: LANSOPRAZOLE
     Indication: HYPERCHLORHYDRIA
     Dosage: 30 MG, DAILY
     Route: 042
     Dates: start: 20141005
  8. OMEPRAZOLE. [Suspect]
     Active Substance: OMEPRAZOLE
     Indication: HYPERCHLORHYDRIA
     Dosage: 40 MG, DAILY
     Route: 045
     Dates: start: 20141028, end: 20141101
  9. ESOMEPRAZOLE (UNKNOWN) [Suspect]
     Active Substance: ESOMEPRAZOLE
     Indication: HYPERCHLORHYDRIA
     Dosage: 80 MG, BID
     Route: 041
     Dates: start: 20141011
  10. ESOMEPRAZOLE (UNKNOWN) [Suspect]
     Active Substance: ESOMEPRAZOLE
     Dosage: 200 MG, UNKNOWN
     Route: 041
     Dates: start: 20141026, end: 20141028

REACTIONS (1)
  - Dermatitis exfoliative [Recovering/Resolving]

NARRATIVE: CASE EVENT DATE: 20141031
